FAERS Safety Report 5414030-4 (Version None)
Quarter: 2007Q3

REPORT INFORMATION
  Report Type: 
  Country: None (occurrence: None)
  Receive Date: 20070814
  Receipt Date: 20070802
  Transmission Date: 20080115
  Serious: Yes (Hospitalization)
  Sender: FDA-Public Use
  Company Number: US-ELI_LILLY_AND_COMPANY-US200708000443

PATIENT
  Sex: Female
  Weight: 117 kg

DRUGS (15)
  1. BYETTA [Suspect]
     Indication: TYPE 2 DIABETES MELLITUS
     Dosage: 5 UG, 2/D
     Route: 058
     Dates: start: 20060101, end: 20060101
  2. BYETTA [Suspect]
     Dosage: 10 UG, 2/D
     Route: 058
     Dates: start: 20060101
  3. COUMADIN [Concomitant]
     Indication: THROMBOSIS
     Dosage: 5 MG, DAILY (1/D)
     Route: 048
     Dates: end: 20070701
  4. COUMADIN [Concomitant]
     Dosage: 5 MG, OTHER
     Route: 048
     Dates: start: 20070701
  5. METFORMIN HCL [Concomitant]
     Indication: TYPE 2 DIABETES MELLITUS
     Dosage: 1000 MG, 2/D
     Route: 048
  6. PREVACID [Concomitant]
     Indication: HIATUS HERNIA
     Dosage: 30 MG, DAILY (1/D)
     Route: 048
  7. FUROSEMIDE [Concomitant]
     Indication: FLUID RETENTION
     Dosage: 40 MG, DAILY (1/D)
     Route: 048
  8. TOPROL-XL [Concomitant]
     Indication: CARDIAC DISORDER
     Dosage: 50 MG, DAILY (1/D)
     Route: 048
  9. ATACAND [Concomitant]
     Indication: BLOOD PRESSURE INCREASED
     Dosage: 60 MG, DAILY (1/D)
     Route: 048
  10. CRESTOR [Concomitant]
     Indication: BLOOD CHOLESTEROL
     Dosage: 10 MG, DAILY (1/D)
     Route: 048
  11. POTASSIUM CHLORIDE [Concomitant]
     Indication: SUPPLEMENTATION THERAPY
     Dosage: 10 MG, DAILY (1/D)
     Route: 048
  12. SINGULAIR [Concomitant]
     Indication: ASTHMA
     Dosage: 10 MG, UNK
     Route: 048
  13. SERTRALINE [Concomitant]
     Indication: ANXIETY
     Dosage: 125 MG, 2/D
     Route: 048
  14. KLONOPIN [Concomitant]
     Indication: DEPRESSION
     Dosage: 1 MG, DAILY (1/D)
     Route: 048
  15. ADVAIR DISKUS 100/50 [Concomitant]
     Indication: ASTHMA
     Dosage: UNK, AS NEEDED
     Route: 055

REACTIONS (8)
  - ASTHMA [None]
  - BLOOD GLUCOSE FLUCTUATION [None]
  - CEREBROVASCULAR ACCIDENT [None]
  - FALL [None]
  - GAIT DISTURBANCE [None]
  - INJECTION SITE BRUISING [None]
  - INTERNATIONAL NORMALISED RATIO INCREASED [None]
  - WEIGHT INCREASED [None]
